FAERS Safety Report 6699845-7 (Version None)
Quarter: 2010Q2

REPORT INFORMATION
  Report Type: 
  Country: None (occurrence: None)
  Receive Date: 20100427
  Receipt Date: 20100427
  Transmission Date: 20101027
  Serious: Yes (Life-Threatening, Hospitalization)
  Sender: FDA-Public Use
  Company Number: None

PATIENT
  Age: 63 Year
  Sex: Male
  Weight: 105.5 kg

DRUGS (2)
  1. CLOPIDOGREL [Suspect]
     Indication: SURGERY
     Dosage: 75 MG EVERY DAY PO
     Route: 048
     Dates: start: 20100324, end: 20100326
  2. ASPIRIN [Suspect]
     Indication: SURGERY
     Dosage: 81 MG EVERY DAY PO
     Route: 048
     Dates: start: 20100324, end: 20100326

REACTIONS (1)
  - MEDIASTINAL HAEMATOMA [None]
